FAERS Safety Report 16405864 (Version 2)
Quarter: 2019Q3

REPORT INFORMATION
  Report Type: Spontaneous
  Country: AU (occurrence: AU)
  Receive Date: 20190607
  Receipt Date: 20190704
  Transmission Date: 20191004
  Serious: Yes (Hospitalization, Other)
  Sender: FDA-Public Use
  Company Number: AU-JNJFOC-20190539890

PATIENT
  Age: 39 Year
  Sex: Female
  Weight: 127 kg

DRUGS (6)
  1. CLOMIPRAMINE HYDROCHLORIDE. [Suspect]
     Active Substance: CLOMIPRAMINE HYDROCHLORIDE
     Indication: PRODUCT USED FOR UNKNOWN INDICATION
     Dosage: 125 MG AT NIGHT
     Route: 065
  2. SOLIAN [Suspect]
     Active Substance: AMISULPRIDE
     Indication: PRODUCT USED FOR UNKNOWN INDICATION
     Route: 065
  3. TOPIRAMATE. [Suspect]
     Active Substance: TOPIRAMATE
     Indication: PRODUCT USED FOR UNKNOWN INDICATION
     Dosage: 50 MG AT NIGHT
     Route: 065
  4. LAMOTRIGINE. [Suspect]
     Active Substance: LAMOTRIGINE
     Indication: PRODUCT USED FOR UNKNOWN INDICATION
     Route: 065
  5. RISPERIDONE. [Suspect]
     Active Substance: RISPERIDONE
     Indication: PRODUCT USED FOR UNKNOWN INDICATION
     Dosage: 2 MG AT NIGHT
     Route: 065
  6. METFORMIN HYDROCHLORIDE. [Suspect]
     Active Substance: METFORMIN HYDROCHLORIDE
     Indication: PRODUCT USED FOR UNKNOWN INDICATION
     Dosage: 1000 MG AT NIGHT
     Route: 065

REACTIONS (12)
  - Regurgitation [Unknown]
  - Left ventricular dysfunction [Unknown]
  - Hyperkinetic heart syndrome [Unknown]
  - Pulmonary hypertension [Unknown]
  - Goitre [Unknown]
  - Sinus arrhythmia [Unknown]
  - Cardiac steatosis [Unknown]
  - Aortic arteriosclerosis [Unknown]
  - Atrial enlargement [Unknown]
  - Diabetes mellitus [Unknown]
  - Hallucination, auditory [Not Recovered/Not Resolved]
  - Obesity [Unknown]

NARRATIVE: CASE EVENT DATE: 20180922
